FAERS Safety Report 22046259 (Version 4)
Quarter: 2023Q2

REPORT INFORMATION
  Report Type: Spontaneous
  Country: BR (occurrence: BR)
  Receive Date: 20230228
  Receipt Date: 20230503
  Transmission Date: 20230722
  Serious: Yes (Hospitalization, Other)
  Sender: FDA-Public Use
  Company Number: BR-PFIZER INC-PV202300036751

PATIENT
  Age: 73 Year
  Sex: Male
  Weight: 42 kg

DRUGS (2)
  1. SUTENT [Suspect]
     Active Substance: SUNITINIB MALATE
     Indication: Metastases to liver
     Dosage: 50 MG, CYCLIC (1 CAPSULE FOR 28 DAYS AND 14 DAYS OFF)
     Dates: start: 202211, end: 20230214
  2. GLYXAMBI [Concomitant]
     Active Substance: EMPAGLIFLOZIN\LINAGLIPTIN
     Dosage: 25 MG, DAILY

REACTIONS (11)
  - Pyrexia [Not Recovered/Not Resolved]
  - Condition aggravated [Not Recovered/Not Resolved]
  - Blood bilirubin abnormal [Not Recovered/Not Resolved]
  - Off label use [Unknown]
  - Neoplasm progression [Not Recovered/Not Resolved]
  - Chills [Recovered/Resolved]
  - Dry mouth [Recovered/Resolved]
  - Dizziness [Recovered/Resolved]
  - Feeling cold [Recovered/Resolved]
  - Tremor [Recovered/Resolved]
  - Blood bilirubin increased [Not Recovered/Not Resolved]
